FAERS Safety Report 7103311-4 (Version None)
Quarter: 2010Q4

REPORT INFORMATION
  Report Type: 
  Country: None (occurrence: None)
  Receive Date: 20101115
  Receipt Date: 20101102
  Transmission Date: 20110411
  Serious: Yes (Hospitalization, Other)
  Sender: FDA-Public Use
  Company Number: US-CELGENEUS-163-21880-10110526

PATIENT
  Sex: Female
  Weight: 61.5 kg

DRUGS (34)
  1. REVLIMID [Suspect]
     Route: 048
     Dates: start: 20091101
  2. REVLIMID [Suspect]
     Route: 048
     Dates: start: 20100701
  3. REVLIMID [Suspect]
     Route: 048
     Dates: start: 20100801
  4. PRILOSEC [Concomitant]
     Route: 048
  5. EFFEXOR [Concomitant]
     Route: 048
  6. TRIAMCINOLONE [Concomitant]
     Route: 061
  7. MUCINEX [Concomitant]
     Route: 048
  8. COLACE [Concomitant]
     Indication: CONSTIPATION
     Route: 048
  9. TRANSDERM [Concomitant]
     Route: 062
  10. ATIVAN [Concomitant]
     Indication: NAUSEA
     Route: 048
  11. ATIVAN [Concomitant]
     Indication: VOMITING
  12. OXYCODONE HCL [Concomitant]
     Indication: PAIN
     Route: 048
  13. ZOFRAN [Concomitant]
     Indication: NAUSEA
     Dosage: 4MG/5ML
     Route: 048
  14. ZOFRAN [Concomitant]
     Indication: VOMITING
  15. AMBIEN [Concomitant]
     Indication: INSOMNIA
     Route: 048
  16. NEUPOGEN [Concomitant]
     Route: 058
  17. KLONOPIN [Concomitant]
     Route: 048
  18. ACYCLOVIR SODIUM [Concomitant]
     Route: 048
     Dates: end: 20101026
  19. BUDESONIDE [Concomitant]
     Route: 048
  20. PREDNISONE [Concomitant]
     Route: 048
  21. CASPOFUNGIN ACETATE [Concomitant]
     Route: 051
  22. MARINOL [Concomitant]
     Route: 048
  23. NORVASC [Concomitant]
     Route: 048
  24. SUCRALFATE [Concomitant]
     Route: 048
  25. PENTAMIDINE ISETHIONATE [Concomitant]
     Route: 048
  26. NOVOLOG [Concomitant]
     Route: 065
  27. VALCYTE [Concomitant]
     Route: 048
  28. PLATELETS [Concomitant]
     Indication: THROMBOCYTOPENIA
     Route: 051
     Dates: start: 20101008, end: 20101008
  29. DAPSONE [Concomitant]
     Indication: PROPHYLAXIS
     Route: 065
  30. LEVAQUIN [Concomitant]
     Indication: PROPHYLAXIS
     Route: 065
  31. REGLAN [Concomitant]
     Indication: PROPHYLAXIS
     Route: 065
  32. FLU SHOT [Concomitant]
     Route: 065
     Dates: start: 20101006, end: 20101006
  33. CLOFARABINE [Concomitant]
     Route: 065
  34. ARA-C [Concomitant]
     Route: 065

REACTIONS (6)
  - ACUTE MYELOID LEUKAEMIA RECURRENT [None]
  - FAILURE TO THRIVE [None]
  - HAEMATEMESIS [None]
  - NAUSEA [None]
  - PANCYTOPENIA [None]
  - VOMITING [None]
